FAERS Safety Report 17311694 (Version 1)
Quarter: 2020Q1

REPORT INFORMATION
  Report Type: Spontaneous
  Country: US (occurrence: US)
  Receive Date: 20200123
  Receipt Date: 20200123
  Transmission Date: 20200409
  Serious: Yes (Other)
  Sender: FDA-Public Use
  Company Number: US-ROCHE-2427274

PATIENT
  Age: 75 Year
  Sex: Female

DRUGS (19)
  1. DOXORUBICIN [Concomitant]
     Active Substance: DOXORUBICIN
  2. POLYETHYLENE GLYCOL [Concomitant]
     Active Substance: POLYETHYLENE GLYCOLS
  3. URSODIOL. [Concomitant]
     Active Substance: URSODIOL
  4. DOCUSATE [Concomitant]
     Active Substance: DOCUSATE
  5. ALBUTEROL HFA [Concomitant]
     Active Substance: ALBUTEROL SULFATE
  6. ONDANSETRON [Concomitant]
     Active Substance: ONDANSETRON
  7. RITUXIMAB. [Suspect]
     Active Substance: RITUXIMAB
     Indication: DIFFUSE LARGE B-CELL LYMPHOMA
     Route: 065
  8. HYDROCODONE/ACETAMINOPHEN [Concomitant]
     Active Substance: ACETAMINOPHEN\HYDROCODONE
  9. PREDNISONE. [Concomitant]
     Active Substance: PREDNISONE
  10. GABAPENTIN. [Concomitant]
     Active Substance: GABAPENTIN
  11. FISH OIL;OMEGA-3 FATTY ACIDS [Concomitant]
     Active Substance: FISH OIL\OMEGA-3 FATTY ACIDS
  12. CYCLOPHOSPHAMIDE. [Concomitant]
     Active Substance: CYCLOPHOSPHAMIDE
  13. VINCRISTINE [Concomitant]
     Active Substance: VINCRISTINE
  14. NITROFURANTOIN. [Concomitant]
     Active Substance: NITROFURANTOIN
     Route: 048
  15. AMITRIPTYLINE [Concomitant]
     Active Substance: AMITRIPTYLINE
  16. LEVOTHYROXINE. [Concomitant]
     Active Substance: LEVOTHYROXINE
  17. PROCHLORPERAZINE. [Concomitant]
     Active Substance: PROCHLORPERAZINE
  18. METHOTREXATE. [Concomitant]
     Active Substance: METHOTREXATE
  19. ACETAZOLAMIDE. [Concomitant]
     Active Substance: ACETAZOLAMIDE
     Dosage: TWO DOSES
     Route: 048

REACTIONS (1)
  - Anaphylactic reaction [Unknown]
